FAERS Safety Report 18991491 (Version 1)
Quarter: 2021Q1

REPORT INFORMATION
  Report Type: Spontaneous
  Country: ZM (occurrence: ZM)
  Receive Date: 20210310
  Receipt Date: 20210310
  Transmission Date: 20210420
  Serious: Yes (Hospitalization, Other)
  Sender: FDA-Public Use
  Company Number: ZM-CASPER PHARMA LLC-2021CAS000110

PATIENT
  Age: 5 Year
  Sex: Female

DRUGS (1)
  1. PENICILLIN G BENZATHINE [Suspect]
     Active Substance: PENICILLIN G BENZATHINE
     Indication: TONSILLITIS
     Dosage: UNK
     Route: 065

REACTIONS (4)
  - Compartment syndrome [Recovered/Resolved]
  - Embolia cutis medicamentosa [Recovered/Resolved]
  - Seizure [Recovered/Resolved]
  - Product use in unapproved indication [Unknown]
